FAERS Safety Report 18479857 (Version 1)
Quarter: 2020Q4

REPORT INFORMATION
  Report Type: Spontaneous
  Country: LV (occurrence: LV)
  Receive Date: 20201109
  Receipt Date: 20201109
  Transmission Date: 20210114
  Serious: Yes (Other)
  Sender: FDA-Public Use
  Company Number: LV-BRISTOL-MYERS SQUIBB COMPANY-BMS-2020-091070

PATIENT
  Age: 44 Year

DRUGS (13)
  1. ATAZANAVIR SULFATE. [Suspect]
     Active Substance: ATAZANAVIR SULFATE
     Indication: PRODUCT USED FOR UNKNOWN INDICATION
     Dosage: UNK
     Route: 065
  2. CHLORPROTHIXENE [Concomitant]
     Active Substance: CHLORPROTHIXENE
     Indication: PRODUCT USED FOR UNKNOWN INDICATION
     Dosage: UNK
     Route: 065
  3. MIRTAZAPINE. [Concomitant]
     Active Substance: MIRTAZAPINE
     Indication: PRODUCT USED FOR UNKNOWN INDICATION
     Dosage: UNK
     Route: 065
  4. DOLUTEGRAVIR [Suspect]
     Active Substance: DOLUTEGRAVIR
     Indication: HIV INFECTION
     Dosage: UNK
     Route: 065
  5. NELFINAVIR [Suspect]
     Active Substance: NELFINAVIR
     Indication: PRODUCT USED FOR UNKNOWN INDICATION
     Dosage: UNK
     Route: 065
  6. DIDANOSINE. [Suspect]
     Active Substance: DIDANOSINE
     Indication: HIV INFECTION
     Dosage: UNK
     Route: 065
  7. INDINAVIR [Suspect]
     Active Substance: INDINAVIR
     Indication: HIV INFECTION
     Dosage: UNK
     Route: 065
  8. ABACAVIR SULPHATE/LAMIVUDINE/ZIDOVUDINE [Suspect]
     Active Substance: ABACAVIR SULFATE\LAMIVUDINE\ZIDOVUDINE
     Indication: HIV INFECTION
     Dosage: UNK
     Route: 065
  9. PERINDOPRIL [Concomitant]
     Active Substance: PERINDOPRIL
     Indication: PRODUCT USED FOR UNKNOWN INDICATION
     Dosage: UNK
     Route: 065
  10. STAVUDINE. [Suspect]
     Active Substance: STAVUDINE
     Indication: HIV INFECTION
     Dosage: UNK
     Route: 065
  11. RITONAVIR. [Suspect]
     Active Substance: RITONAVIR
     Indication: PRODUCT USED FOR UNKNOWN INDICATION
     Dosage: UNK
     Route: 065
  12. LAMIVUDINE AND ZIDOVUDINE [Suspect]
     Active Substance: LAMIVUDINE\ZIDOVUDINE
     Indication: HIV INFECTION
     Dosage: UNK
     Route: 065
  13. TRUVADA [Suspect]
     Active Substance: EMTRICITABINE\TENOFOVIR DISOPROXIL FUMARATE
     Indication: PRODUCT USED FOR UNKNOWN INDICATION
     Dosage: UNK
     Route: 065

REACTIONS (6)
  - Blood HIV RNA increased [Unknown]
  - Treatment noncompliance [Unknown]
  - Nervous system disorder [Unknown]
  - Drug hypersensitivity [Unknown]
  - Drug ineffective [Unknown]
  - Glomerular filtration rate decreased [Unknown]
